FAERS Safety Report 4370012-5 (Version None)
Quarter: 2004Q2

REPORT INFORMATION
  Report Type: 
  Country: None (occurrence: None)
  Receive Date: 20040603
  Receipt Date: 20040525
  Transmission Date: 20050107
  Serious: Yes (Other)
  Sender: FDA-Public Use
  Company Number: PHBS2004CA06888

PATIENT
  Sex: Male

DRUGS (4)
  1. EXELON [Suspect]
     Dosage: 12 MG, BID
     Route: 048
  2. EXELON [Suspect]
     Dosage: 12 MG/D
     Route: 048
  3. RISPERDAL [Concomitant]
     Dosage: 1.5 MG, BID
     Route: 065
  4. SERAX [Concomitant]
     Dosage: 10 MG, BID
     Route: 065

REACTIONS (6)
  - ABNORMAL BEHAVIOUR [None]
  - ANXIETY [None]
  - DIFFICULTY IN WALKING [None]
  - HALLUCINATION [None]
  - IMPAIRED SELF-CARE [None]
  - SLEEP DISORDER [None]
